FAERS Safety Report 7940474-2 (Version None)
Quarter: 2011Q4

REPORT INFORMATION
  Report Type: 
  Country: None (occurrence: None)
  Receive Date: 20111128
  Receipt Date: 20111121
  Transmission Date: 20120403
  Serious: No
  Sender: FDA-Public Use
  Company Number: US-PFIZER INC-2011285261

PATIENT
  Sex: Male

DRUGS (5)
  1. SILODOSIN [Interacting]
     Indication: PROSTATOMEGALY
     Dosage: 8 MG, (1 CAP QD)
     Route: 048
     Dates: start: 20110601
  2. VERAPAMIL HYDROCHLORIDE [Interacting]
     Indication: BLOOD PRESSURE
     Dosage: 40 MG, DAILY (1 TAB PM)
     Route: 048
  3. VERAPAMIL [Interacting]
     Indication: BLOOD PRESSURE
     Dosage: 120 MG, PM
     Route: 048
  4. IBUPROFEN (ADVIL) [Suspect]
     Dosage: UNK
  5. CELEBREX [Interacting]
     Dosage: UNK

REACTIONS (2)
  - DRUG INTERACTION [None]
  - DRUG INEFFECTIVE [None]
